FAERS Safety Report 25788026 (Version 2)
Quarter: 2025Q3

REPORT INFORMATION
  Report Type: Spontaneous
  Country: US (occurrence: US)
  Receive Date: 20250910
  Receipt Date: 20250930
  Transmission Date: 20251020
  Serious: Yes (Death)
  Sender: BAYER HEALTHCARE PHARMACEUTICALS INC.
  Company Number: US-BAYER-2025A116692

PATIENT
  Age: 63 Year
  Sex: Male

DRUGS (1)
  1. XOFIGO [Suspect]
     Active Substance: RADIUM RA-223 DICHLORIDE
     Dates: start: 20250827, end: 20250827

REACTIONS (4)
  - Death [Fatal]
  - Pain in extremity [None]
  - Muscular weakness [None]
  - Hospice care [None]

NARRATIVE: CASE EVENT DATE: 20250101
